FAERS Safety Report 9959372 (Version 1)
Quarter: 2014Q1

REPORT INFORMATION
  Report Type: Report from Study
  Country: US (occurrence: US)
  Receive Date: 20140305
  Receipt Date: 20140305
  Transmission Date: 20141002
  Serious: No
  Sender: FDA-Public Use
  Company Number: US-ABBVIE-13P-163-1103592-00

PATIENT
  Age: 70 Year
  Sex: Male

DRUGS (7)
  1. HUMIRA [Suspect]
     Indication: COLITIS ULCERATIVE
     Route: 058
     Dates: start: 20130313
  2. LIALDA [Concomitant]
     Indication: COLITIS ULCERATIVE
     Route: 048
  3. ACIPHEX [Concomitant]
     Indication: GASTROOESOPHAGEAL REFLUX DISEASE
     Route: 048
  4. ATIVAN [Concomitant]
     Indication: INSOMNIA
  5. MULTIVITAMIN [Concomitant]
     Indication: PRODUCT USED FOR UNKNOWN INDICATION
     Dosage: DAILY (WHEN HE REMEMBERS)
  6. FLONASE [Concomitant]
     Indication: HYPERSENSITIVITY
     Dosage: ONCE IN A WHILE, IN SUMMER, MIGHT TAKE A ZYRTEC
  7. IBUPROFEN [Concomitant]
     Indication: BACK PAIN

REACTIONS (1)
  - Injection site urticaria [Recovering/Resolving]
